FAERS Safety Report 23820611 (Version 3)
Quarter: 2024Q2

REPORT INFORMATION
  Report Type: Report from Study
  Country: CA (occurrence: CA)
  Receive Date: 20240506
  Receipt Date: 20240612
  Transmission Date: 20240715
  Serious: Yes (Other)
  Sender: FDA-Public Use
  Company Number: CA-IPSEN Group, Research and Development-2024-06266

PATIENT
  Age: 59 Year
  Sex: Female

DRUGS (11)
  1. LANREOTIDE ACETATE [Suspect]
     Active Substance: LANREOTIDE ACETATE
     Indication: Carcinoid syndrome
     Dosage: DEEP SUBCUTANEOUS
     Route: 058
     Dates: start: 20240314
  2. LANREOTIDE ACETATE [Suspect]
     Active Substance: LANREOTIDE ACETATE
     Indication: Neuroendocrine tumour of the lung metastatic
  3. VITAMIN D [Concomitant]
     Active Substance: VITAMIN D NOS
     Dosage: 10 DROPS DAILY, ABOUT 20 MGS
  4. VITAMIN B12 [Concomitant]
     Active Substance: CYANOCOBALAMIN
     Dosage: VITAMIN B12-5000MG-1 DAILY
  5. VITAMIN E [Concomitant]
     Active Substance: .ALPHA.-TOCOPHEROL
     Dosage: VITAMIN E-300MG-1 DAILY PROBIOTIC
  6. QUERCETIN [Concomitant]
     Active Substance: QUERCETIN
     Dosage: QUERCETIN, 250MG 1DAILY
  7. CURCUMIN [Concomitant]
     Active Substance: CURCUMIN
     Dosage: CURCUMIN, 500MG-3DAILY
  8. NATTOKINASE [Concomitant]
     Active Substance: NATTOKINASE
     Dosage: NATTOKINASE, 100MG-1 DAILY
  9. OMEGA 3 [Concomitant]
     Active Substance: CAPSAICIN
     Dosage: OMEGA 3- 1 TSP DAILY 1200MG
  10. DESSICATED THYROID [Concomitant]
     Dosage: THYROID 30MGS-3 DAILY
  11. ESTROGENS [Concomitant]
     Active Substance: ESTROGENS
     Dosage: 2.5MG-EVERY OTHER DAY

REACTIONS (5)
  - Diarrhoea [Recovered/Resolved]
  - Malignant neoplasm progression [Unknown]
  - Abdominal pain upper [Recovered/Resolved]
  - Diarrhoea [Recovered/Resolved]
  - Flushing [Unknown]

NARRATIVE: CASE EVENT DATE: 20240314
